FAERS Safety Report 5287791-5 (Version None)
Quarter: 2007Q2

REPORT INFORMATION
  Report Type: 
  Country: None (occurrence: None)
  Receive Date: 20070402
  Receipt Date: 20070402
  Transmission Date: 20071010
  Serious: Yes (Hospitalization)
  Sender: FDA-Public Use
  Company Number: None

PATIENT
  Sex: Male

DRUGS (7)
  1. BEVACIZUMAB (GENENTECH) [Suspect]
     Indication: ANAPLASTIC ASTROCYTOMA
     Dosage: 10 MG/KG
     Dates: start: 20070309
  2. ERLOTINIB (GENENTECH) [Suspect]
     Indication: ANAPLASTIC ASTROCYTOMA
     Dosage: 500 MG/DAY
     Dates: start: 20070308
  3. KEPPRA [Concomitant]
  4. LEXAPRO [Concomitant]
  5. PROTONIX [Concomitant]
  6. DECADRON [Concomitant]
  7. DILANTIN [Concomitant]

REACTIONS (2)
  - PULMONARY EMBOLISM [None]
  - TENDERNESS [None]
